FAERS Safety Report 24281106 (Version 1)
Quarter: 2024Q3

REPORT INFORMATION
  Report Type: Spontaneous
  Country: CN (occurrence: CN)
  Receive Date: 20240904
  Receipt Date: 20240904
  Transmission Date: 20241017
  Serious: Yes (Life-Threatening, Other)
  Sender: BAYER
  Company Number: CN-BAYER-2024A126063

PATIENT
  Age: 40 Year
  Sex: Female
  Weight: 54 kg

DRUGS (2)
  1. ULTRAVIST [Suspect]
     Active Substance: IOPROMIDE
     Indication: Computerised tomogram abdomen
     Dosage: 66 ML, ONCE
     Route: 042
     Dates: start: 20240805, end: 20240805
  2. ULTRAVIST [Suspect]
     Active Substance: IOPROMIDE
     Indication: Hepatic mass

REACTIONS (11)
  - Anaphylactic shock [Recovering/Resolving]
  - Muscle spasms [None]
  - Loss of consciousness [Recovered/Resolved]
  - Urinary incontinence [None]
  - Blood pressure decreased [Recovered/Resolved]
  - Nausea [None]
  - Vomiting [Recovered/Resolved]
  - Cold sweat [None]
  - Flushing [None]
  - Blood glucose increased [None]
  - Palpitations [None]

NARRATIVE: CASE EVENT DATE: 20240805
